FAERS Safety Report 5527679-5 (Version None)
Quarter: 2007Q4

REPORT INFORMATION
  Report Type: 
  Country: None (occurrence: None)
  Receive Date: 20071128
  Receipt Date: 20071115
  Transmission Date: 20080405
  Serious: Yes (Hospitalization)
  Sender: FDA-Public Use
  Company Number: US-AMGEN-QUU249451

PATIENT
  Sex: Female
  Weight: 54.5 kg

DRUGS (7)
  1. NEULASTA [Suspect]
     Indication: CHEMOTHERAPY
     Route: 065
     Dates: start: 20070701
  2. TAXOL [Suspect]
     Dates: start: 20071005, end: 20071005
  3. CARBOPLATIN [Concomitant]
  4. BENADRYL [Concomitant]
     Dates: start: 20071005, end: 20071005
  5. TAGAMET [Concomitant]
     Dates: start: 20071005, end: 20071005
  6. PEPCID [Concomitant]
     Dates: start: 20071005, end: 20071005
  7. DECADRON [Concomitant]
     Dates: start: 20071005, end: 20071005

REACTIONS (7)
  - ADVERSE DRUG REACTION [None]
  - CHILLS [None]
  - COUGH [None]
  - DYSPNOEA [None]
  - HYPOXIA [None]
  - LUNG INFILTRATION [None]
  - PYREXIA [None]
